FAERS Safety Report 5680801-2 (Version None)
Quarter: 2008Q1

REPORT INFORMATION
  Report Type: 
  Country: None (occurrence: None)
  Receive Date: 20080326
  Receipt Date: 20080318
  Transmission Date: 20080703
  Serious: Yes (Other)
  Sender: FDA-Public Use
  Company Number: DE-BOEHRINGER INGELHEIM GMBH, GERMANY-2008-DE-01675DE

PATIENT
  Age: 26 Year
  Sex: Female
  Weight: 74 kg

DRUGS (7)
  1. CLONIDINE HCL [Suspect]
     Route: 048
  2. CELLCEPT [Suspect]
     Route: 048
  3. DILZEM RETARD [Suspect]
     Route: 048
  4. INSIDON [Suspect]
     Route: 048
  5. OMEPRAZOLE [Suspect]
     Route: 048
  6. OPTOSOL [Suspect]
     Route: 048
  7. URBASON [Suspect]
     Route: 048

REACTIONS (4)
  - DRUG ABUSE [None]
  - HYPOTENSION [None]
  - OVERDOSE [None]
  - SUICIDE ATTEMPT [None]
